FAERS Safety Report 9465237 (Version 3)
Quarter: 2013Q3

REPORT INFORMATION
  Report Type: Spontaneous
  Country: FR (occurrence: FR)
  Receive Date: 20130819
  Receipt Date: 20130923
  Transmission Date: 20140515
  Serious: Yes (Hospitalization, Other)
  Sender: FDA-Public Use
  Company Number: FR-CELGENEUS-056-20785-13050440

PATIENT
  Age: 76 Year
  Sex: Male

DRUGS (8)
  1. THALIDOMIDE [Suspect]
     Indication: PLASMA CELL MYELOMA
     Dosage: 100 MILLIGRAM
     Route: 048
     Dates: start: 20110408, end: 20110624
  2. THALIDOMIDE [Suspect]
     Dosage: 100 MILLIGRAM
     Route: 048
     Dates: start: 20110726, end: 20110829
  3. MELPHALAN [Concomitant]
     Indication: PLASMA CELL MYELOMA
     Dosage: 4 DAYS/MONTH
     Route: 048
     Dates: start: 20110408
  4. PREDNISONE [Concomitant]
     Indication: PLASMA CELL MYELOMA
     Dosage: 160 MILLIGRAM
     Route: 048
     Dates: start: 20110408
  5. PREVISCAN [Concomitant]
     Indication: PULMONARY EMBOLISM
     Route: 048
     Dates: start: 20110524
  6. PREVISCAN [Concomitant]
     Route: 065
     Dates: start: 20110824
  7. XATRAL [Concomitant]
     Indication: BENIGN PROSTATIC HYPERPLASIA
     Route: 048
     Dates: start: 2011
  8. CHIBRO-PROSCAR [Concomitant]
     Indication: BENIGN PROSTATIC HYPERPLASIA
     Route: 048
     Dates: start: 2011

REACTIONS (3)
  - Neutrophilic dermatosis [Recovered/Resolved with Sequelae]
  - Pulmonary embolism [Recovered/Resolved]
  - Atrial thrombosis [Recovered/Resolved]
